FAERS Safety Report 11923264 (Version 1)
Quarter: 2016Q1

REPORT INFORMATION
  Report Type: Spontaneous
  Country: US (occurrence: US)
  Receive Date: 20160118
  Receipt Date: 20160118
  Transmission Date: 20160526
  Serious: Yes (Hospitalization)
  Sender: FDA-Public Use
  Company Number: US-AMGEN-USASP2016003275

PATIENT
  Age: 81 Year
  Sex: Female

DRUGS (1)
  1. PROLIA [Suspect]
     Active Substance: DENOSUMAB
     Indication: PRODUCT USED FOR UNKNOWN INDICATION
     Dosage: UNK
     Route: 065

REACTIONS (13)
  - Hospitalisation [Not Recovered/Not Resolved]
  - Blood sodium decreased [Unknown]
  - Abdominal pain upper [Unknown]
  - Muscle spasms [Unknown]
  - Peripheral swelling [Unknown]
  - Rash pruritic [Unknown]
  - Back pain [Unknown]
  - Limb discomfort [Unknown]
  - Growing pains [Unknown]
  - Gastrooesophageal reflux disease [Unknown]
  - Pain [Unknown]
  - Myalgia [Unknown]
  - Bone pain [Unknown]
